FAERS Safety Report 8609789-9 (Version None)
Quarter: 2012Q3

REPORT INFORMATION
  Report Type: 
  Country: None (occurrence: None)
  Receive Date: 20120821
  Receipt Date: 20120813
  Transmission Date: 20120928
  Serious: Yes (Other)
  Sender: FDA-Public Use
  Company Number: CHPA2012US018049

PATIENT
  Sex: Male

DRUGS (3)
  1. EXCEDRIN EXTRA STRENGTH CAPLETS [Suspect]
     Dosage: 1 DF, PRN
     Route: 048
     Dates: start: 19950201, end: 20120101
  2. EXCEDRIN EXTRA STRENGTH CAPLETS [Suspect]
     Indication: HEADACHE
     Dosage: UNK
     Route: 048
     Dates: start: 19850101, end: 19950101
  3. EXCEDRIN EXTRA STRENGTH CAPLETS [Suspect]
     Dosage: .5 DF, PRN
     Route: 048
     Dates: start: 20120101

REACTIONS (7)
  - BRAIN NEOPLASM [None]
  - DEAFNESS UNILATERAL [None]
  - WRONG TECHNIQUE IN DRUG USAGE PROCESS [None]
  - BALANCE DISORDER [None]
  - MYOCARDIAL INFARCTION [None]
  - MUSCLE DISORDER [None]
  - UNDERDOSE [None]
